FAERS Safety Report 8414241-X (Version None)
Quarter: 2012Q2

REPORT INFORMATION
  Report Type: 
  Country: None (occurrence: None)
  Receive Date: 20120605
  Receipt Date: 20120604
  Transmission Date: 20120825
  Serious: Yes (Other)
  Sender: FDA-Public Use
  Company Number: US-PFIZER INC-2012124869

PATIENT

DRUGS (1)
  1. XANAX [Suspect]
     Dosage: UNK

REACTIONS (4)
  - NERVOUS SYSTEM DISORDER [None]
  - WITHDRAWAL SYNDROME [None]
  - AMNESIA [None]
  - BRAIN INJURY [None]
